FAERS Safety Report 9997079 (Version 3)
Quarter: 2014Q2

REPORT INFORMATION
  Report Type: Report from Study
  Country: US (occurrence: US)
  Receive Date: 20140311
  Receipt Date: 20140414
  Transmission Date: 20141212
  Serious: Yes (Hospitalization)
  Sender: FDA-Public Use
  Company Number: US-JNJFOC-20140302208

PATIENT
  Age: 36 Year
  Sex: Female
  Weight: 90.72 kg

DRUGS (7)
  1. SIMPONI [Suspect]
     Indication: COLITIS ULCERATIVE
     Route: 058
     Dates: start: 20140216
  2. METFORMIN [Concomitant]
     Indication: DIABETES MELLITUS
     Route: 048
     Dates: start: 20130120
  3. MULTIVITAMINS [Concomitant]
     Indication: GENERAL PHYSICAL CONDITION
     Route: 065
     Dates: start: 2013
  4. OMEPRAZOLE [Concomitant]
     Indication: GASTROOESOPHAGEAL REFLUX DISEASE
     Route: 048
     Dates: start: 2010
  5. DELZICOL [Concomitant]
     Indication: INFLAMMATORY BOWEL DISEASE
     Route: 048
     Dates: start: 2004
  6. DELZICOL [Concomitant]
     Indication: COLITIS ULCERATIVE
     Route: 048
     Dates: start: 2004
  7. CETIRIZINE [Concomitant]
     Route: 065
     Dates: start: 2012

REACTIONS (7)
  - Pericardial effusion [Unknown]
  - Hypertension [Unknown]
  - Device malfunction [Unknown]
  - Accidental exposure to product [Unknown]
  - Drug dose omission [Not Recovered/Not Resolved]
  - Injection site pain [Recovered/Resolved]
  - Application site reaction [Unknown]
